FAERS Safety Report 11746452 (Version 1)
Quarter: 2015Q4

REPORT INFORMATION
  Report Type: Spontaneous
  Country: JP (occurrence: JP)
  Receive Date: 20151117
  Receipt Date: 20151117
  Transmission Date: 20160304
  Serious: Yes (Hospitalization)
  Sender: FDA-Public Use
  Company Number: JP-MYLANLABS-2015M1039498

PATIENT

DRUGS (4)
  1. WARFARIN [Suspect]
     Active Substance: WARFARIN
     Dosage: 2 MG/DAY ON POSTOPERATIVE DAY 6
     Route: 065
  2. WARFARIN [Suspect]
     Active Substance: WARFARIN
     Indication: PULMONARY EMBOLISM
     Dosage: 1 MG/DAY
     Route: 065
  3. WARFARIN [Suspect]
     Active Substance: WARFARIN
     Dosage: 3 MG/DAY ON POSTOPERATIVE DAY 9
     Route: 065
  4. FONDAPARINUX INJECTION [Suspect]
     Active Substance: FONDAPARINUX
     Indication: PULMONARY EMBOLISM
     Route: 058

REACTIONS (2)
  - Paraplegia [Recovered/Resolved]
  - Spinal epidural haematoma [Recovered/Resolved]
